FAERS Safety Report 20140266 (Version 11)
Quarter: 2023Q2

REPORT INFORMATION
  Report Type: Spontaneous
  Country: US (occurrence: US)
  Receive Date: 20211202
  Receipt Date: 20230426
  Transmission Date: 20230722
  Serious: Yes (Other)
  Sender: FDA-Public Use
  Company Number: US-DSJP-DSU-2021-140131AA

PATIENT
  Sex: Female

DRUGS (4)
  1. TURALIO [Suspect]
     Active Substance: PEXIDARTINIB HYDROCHLORIDE
     Indication: Synovitis
     Dosage: 400MG QAM, 200MG QPM
     Route: 048
     Dates: start: 20211002
  2. TURALIO [Suspect]
     Active Substance: PEXIDARTINIB HYDROCHLORIDE
     Indication: Giant cell tumour of tendon sheath
     Dosage: ONE CAPSULE IN THE MORNING AND ONECAPSULE IN THE EVENING
     Route: 048
     Dates: start: 20221019
  3. TURALIO [Suspect]
     Active Substance: PEXIDARTINIB HYDROCHLORIDE
     Dosage: 1 CAPSULE TWICE DAILY
     Route: 048
     Dates: start: 20221020
  4. ALLEGRA [Concomitant]
     Active Substance: FEXOFENADINE HYDROCHLORIDE
     Indication: Product used for unknown indication
     Dosage: UNK
     Route: 065

REACTIONS (21)
  - Angioedema [Not Recovered/Not Resolved]
  - Brain fog [Recovered/Resolved]
  - Fatigue [Recovered/Resolved]
  - Product dose omission issue [Recovered/Resolved]
  - Pollakiuria [Not Recovered/Not Resolved]
  - Nausea [Unknown]
  - Swelling [Recovered/Resolved]
  - Migraine [Recovered/Resolved]
  - Dry eye [Unknown]
  - Hypoaesthesia [Unknown]
  - Confusional state [Not Recovered/Not Resolved]
  - COVID-19 [Recovering/Resolving]
  - Sinusitis [Not Recovered/Not Resolved]
  - Lip swelling [Not Recovered/Not Resolved]
  - Peripheral swelling [Not Recovered/Not Resolved]
  - Haemoglobin increased [Not Recovered/Not Resolved]
  - Haematocrit increased [Not Recovered/Not Resolved]
  - Swelling face [Not Recovered/Not Resolved]
  - Muscle twitching [Unknown]
  - Adverse event [Unknown]
  - Blepharospasm [Unknown]

NARRATIVE: CASE EVENT DATE: 20220101
